FAERS Safety Report 19082958 (Version 1)
Quarter: 2021Q2

REPORT INFORMATION
  Report Type: Spontaneous
  Country: IE (occurrence: IE)
  Receive Date: 20210401
  Receipt Date: 20210401
  Transmission Date: 20210717
  Serious: Yes (Other)
  Sender: FDA-Public Use
  Company Number: IE-AMNEAL PHARMACEUTICALS-2021-AMRX-01077

PATIENT
  Age: 58 Year
  Sex: Female

DRUGS (1)
  1. CLOBETASOL PROPIONATE. [Suspect]
     Active Substance: CLOBETASOL PROPIONATE
     Indication: RASH VESICULAR
     Dosage: UNK
     Route: 065

REACTIONS (3)
  - Acquired epidermolysis bullosa [Unknown]
  - Steroid diabetes [Unknown]
  - Adrenal insufficiency [Unknown]
